FAERS Safety Report 10052719 (Version 3)
Quarter: 2014Q2

REPORT INFORMATION
  Report Type: Spontaneous
  Country: US (occurrence: None)
  Receive Date: 20140331
  Receipt Date: 20140512
  Transmission Date: 20141212
  Serious: Yes (Death, Hospitalization)
  Sender: FDA-Public Use
  Company Number: UTC-046334

PATIENT
  Age: 86 Year
  Sex: Male
  Weight: 62.59 kg

DRUGS (2)
  1. TYVASO [Suspect]
     Indication: PULMONARY ARTERIAL HYPERTENSION
     Dosage: 18 TO 54 MCG (4 IN 1 D), INHALATION
     Route: 055
     Dates: start: 20120306, end: 20140319
  2. WARFARIN [Concomitant]

REACTIONS (7)
  - Gastrointestinal haemorrhage [None]
  - Pneumonia [None]
  - Sepsis [None]
  - Melaena [None]
  - Chronic respiratory failure [None]
  - Hypoxia [None]
  - Syncope [None]
